FAERS Safety Report 7459458-6 (Version None)
Quarter: 2011Q2

REPORT INFORMATION
  Report Type: 
  Country: None (occurrence: None)
  Receive Date: 20110504
  Receipt Date: 20110504
  Transmission Date: 20111010
  Serious: Yes (Other)
  Sender: FDA-Public Use
  Company Number: None

PATIENT
  Age: 80 Year
  Sex: Female
  Weight: 85.2762 kg

DRUGS (1)
  1. LEVAQUIN [Suspect]
     Indication: PNEUMONIA
     Dosage: 500 MG DAILY PO
     Route: 048
     Dates: start: 20110318, end: 20110327

REACTIONS (5)
  - JOINT STIFFNESS [None]
  - ARTHRALGIA [None]
  - NIGHT SWEATS [None]
  - PYREXIA [None]
  - LETHARGY [None]
